FAERS Safety Report 13732829 (Version 1)
Quarter: 2017Q3

REPORT INFORMATION
  Report Type: Spontaneous
  Country: US (occurrence: US)
  Receive Date: 20170707
  Receipt Date: 20170707
  Transmission Date: 20171127
  Serious: No
  Sender: FDA-Public Use
  Company Number: GXBR2017US001892

PATIENT
  Age: 54 Year
  Sex: Female
  Weight: 86.17 kg

DRUGS (4)
  1. CORDRAN [Concomitant]
     Active Substance: FLURANDRENOLIDE
     Indication: PRODUCT USED FOR UNKNOWN INDICATION
     Dosage: UNK DF, BID
     Route: 061
  2. VITAMIN D3 [Concomitant]
     Active Substance: CHOLECALCIFEROL
     Indication: PRODUCT USED FOR UNKNOWN INDICATION
     Dosage: 3000 IU, UNK
     Route: 048
  3. AMOXICILLIN AND CLAVULANATE POTASSIUM TABLETS USP [Suspect]
     Active Substance: AMOXICILLIN\CLAVULANATE POTASSIUM
     Indication: PHARYNGITIS STREPTOCOCCAL
     Dosage: 875/125 MG, BID
     Route: 048
     Dates: start: 20170513, end: 20170522
  4. DRYSOL [Concomitant]
     Active Substance: ALUMINUM CHLORIDE
     Indication: PRODUCT USED FOR UNKNOWN INDICATION
     Dosage: UNK DF, UNK
     Route: 061

REACTIONS (9)
  - Swelling face [Recovered/Resolved]
  - Blood pressure increased [Unknown]
  - Pruritus [Recovered/Resolved]
  - Drug eruption [Recovered/Resolved]
  - Lip swelling [Recovered/Resolved]
  - Solar urticaria [Recovered/Resolved]
  - Rash generalised [Recovered/Resolved]
  - Depression [Unknown]
  - Dyspnoea [Unknown]

NARRATIVE: CASE EVENT DATE: 20170520
